FAERS Safety Report 6659731-5 (Version None)
Quarter: 2010Q1

REPORT INFORMATION
  Report Type: 
  Country: None (occurrence: None)
  Receive Date: 20100325
  Receipt Date: 20100315
  Transmission Date: 20100710
  Serious: Yes (Hospitalization)
  Sender: FDA-Public Use
  Company Number: 1000012634

PATIENT
  Age: 91 Year
  Sex: Female

DRUGS (3)
  1. MEMANTINE HCL [Suspect]
     Indication: DEMENTIA
     Dosage: 5 MG, ORAL
     Dates: start: 20080201, end: 20091124
  2. HALOPERIDOL [Concomitant]
  3. DICLOFENAC SODIUM [Concomitant]

REACTIONS (1)
  - PANCREATITIS [None]
